FAERS Safety Report 10754215 (Version 1)
Quarter: 2015Q1

REPORT INFORMATION
  Report Type: Spontaneous
  Country: DE (occurrence: DE)
  Receive Date: 20150202
  Receipt Date: 20150202
  Transmission Date: 20150721
  Serious: Yes (Congenital Anomaly)
  Sender: FDA-Public Use
  Company Number: DE-RANBAXY-2015RR-92297

PATIENT
  Age: 1 Day
  Sex: Female

DRUGS (11)
  1. FRAGMIN [Concomitant]
     Active Substance: DALTEPARIN SODIUM
     Indication: ASSISTED FERTILISATION
     Dosage: 5000 IU, DAILY, FROM 0 TO 24 GW
     Route: 064
  2. SERTRALINE [Suspect]
     Active Substance: SERTRALINE HYDROCHLORIDE
     Indication: OBSESSIVE-COMPULSIVE DISORDER
     Dosage: 150 MG, DAILY, FROM 0 TO 32.3 GW
     Route: 064
     Dates: start: 20130906, end: 20140421
  3. I-THYROXIN [Concomitant]
     Indication: AUTOIMMUNE THYROIDITIS
     Dosage: 175 ?G, DAILY, FROM 0 TO 32.3 GW
     Route: 064
     Dates: start: 20130906, end: 20140421
  4. BUSCOPAN [Concomitant]
     Active Substance: BUTYLSCOPOLAMINE BROMIDE
     Indication: KIDNEY INFECTION
     Dosage: 28-29 GW
     Route: 064
  5. UTROGEST [Concomitant]
     Active Substance: PROGESTERONE
     Indication: ASSISTED FERTILISATION
     Dosage: 0-12 GW
     Route: 064
  6. ASS 100 [Concomitant]
     Active Substance: ASPIRIN
     Indication: ASSISTED FERTILISATION
     Dosage: 100 MG, DAILY, FROM 0 TO 32.3 GW
     Route: 064
     Dates: start: 20130906, end: 20140421
  7. THYBON [Concomitant]
     Indication: AUTOIMMUNE THYROIDITIS
     Dosage: 10 ?G, DAILY, FROM 0 TO 8.3 GW
     Route: 064
     Dates: start: 20130906, end: 20131104
  8. FOLSAURE RATIOPHARM [Concomitant]
     Active Substance: FOLIC ACID
     Indication: PROPHYLAXIS OF NEURAL TUBE DEFECT
     Dosage: 5 MG, DAILY, FROM 0 TO 32.3 GW
     Route: 064
     Dates: start: 20130906, end: 20140421
  9. NOVORAPID [Concomitant]
     Active Substance: INSULIN ASPART
     Indication: GESTATIONAL DIABETES
     Dosage: 28-32.3 GW
     Route: 064
  10. CEFURAX [Concomitant]
     Active Substance: CEFUROXIME AXETIL
     Indication: KIDNEY INFECTION
     Dosage: 28-29 GW
     Route: 064
  11. PREDNISOLONE. [Suspect]
     Active Substance: PREDNISOLONE
     Indication: ASSISTED FERTILISATION
     Dosage: 5 MG, TID, FROM 0 TO 32.3 GW
     Route: 064
     Dates: start: 20130906, end: 20140421

REACTIONS (1)
  - Haemangioma congenital [Not Recovered/Not Resolved]

NARRATIVE: CASE EVENT DATE: 20140421
